FAERS Safety Report 7765624-2 (Version None)
Quarter: 2011Q3

REPORT INFORMATION
  Report Type: 
  Country: None (occurrence: None)
  Receive Date: 20110921
  Receipt Date: 20110919
  Transmission Date: 20111222
  Serious: Yes (Hospitalization)
  Sender: FDA-Public Use
  Company Number: PHHY2011NL57539

PATIENT
  Sex: Male

DRUGS (11)
  1. ZOMETA [Suspect]
     Dosage: 4 MG, PER 5 ML PER 28 DAYS
     Route: 042
     Dates: start: 20110530
  2. PREDNISOLONE [Concomitant]
     Dosage: 40 MG, DAILY
     Route: 065
  3. PANTOPRAZOLE [Concomitant]
     Dosage: 40 MG, DAILY
     Route: 065
  4. ACETAMINOPHEN [Concomitant]
     Dosage: 1000 MG, TID
     Route: 065
  5. ZOMETA [Suspect]
     Dosage: 4 MG, PER 5 ML PER 28 DAYS
     Route: 042
     Dates: start: 20110628
  6. ZOMETA [Suspect]
     Dosage: 4 MG, PER 5 ML PER 28 DAYS
     Dates: start: 20110824
  7. IPILIMUMAB [Concomitant]
     Route: 065
     Dates: start: 20110526
  8. ZOMETA [Suspect]
     Dosage: 4 MG, PER 5 ML PER 28 DAYS
     Dates: start: 20110919
  9. ZOMETA [Suspect]
     Indication: PROSTATE CANCER METASTATIC
     Dosage: 4 MG, PER 5 ML PER 28 DAYS
     Route: 042
     Dates: start: 20110310
  10. TAMSULOSIN HCL [Concomitant]
     Dosage: 0.4 MG, DAILY
     Route: 065
  11. VALPROIC ACID [Concomitant]
     Dosage: 500 MG, TID
     Route: 065

REACTIONS (4)
  - DYSURIA [None]
  - DIARRHOEA [None]
  - CLOSTRIDIAL INFECTION [None]
  - PYREXIA [None]
